FAERS Safety Report 7691475-3 (Version None)
Quarter: 2011Q3

REPORT INFORMATION
  Report Type: 
  Country: None (occurrence: None)
  Receive Date: 20110818
  Receipt Date: 20110811
  Transmission Date: 20111222
  Serious: Yes (Other)
  Sender: FDA-Public Use
  Company Number: PH-SHIRE-ALL1-2011-02804

PATIENT
  Age: 59 Year
  Sex: Female

DRUGS (1)
  1. FOSRENOL [Suspect]
     Indication: HYPERPHOSPHATAEMIA
     Dosage: 500 MG, UNKNOWN
     Route: 048
     Dates: start: 20110810

REACTIONS (2)
  - PRURITUS GENERALISED [None]
  - RASH [None]
